FAERS Safety Report 7180439-4 (Version None)
Quarter: 2010Q4

REPORT INFORMATION
  Report Type: 
  Country: None (occurrence: None)
  Receive Date: 20101221
  Receipt Date: 20101209
  Transmission Date: 20110411
  Serious: Yes (Other)
  Sender: FDA-Public Use
  Company Number: FR-AMGEN-FRASP2010009614

PATIENT

DRUGS (3)
  1. ENBREL [Suspect]
     Indication: PSORIATIC ARTHROPATHY
     Dosage: 1 DF, WEEKLY
     Route: 058
     Dates: start: 20100225, end: 20100225
  2. ORENCIA [Suspect]
     Indication: PSORIATIC ARTHROPATHY
     Dosage: 750 MG/4 WEEKS
     Route: 042
     Dates: start: 20100428
  3. HUMIRA [Suspect]
     Indication: PSORIATIC ARTHROPATHY
     Dosage: UNK
     Route: 058
     Dates: start: 20090901, end: 20100225

REACTIONS (1)
  - SCLERITIS [None]
